FAERS Safety Report 11696847 (Version 1)
Quarter: 2015Q4

REPORT INFORMATION
  Report Type: Spontaneous
  Country: FR (occurrence: FR)
  Receive Date: 20151104
  Receipt Date: 20151104
  Transmission Date: 20160304
  Serious: Yes (Hospitalization)
  Sender: FDA-Public Use
  Company Number: FR-JNJFOC-20151020435

PATIENT
  Age: 69 Year
  Sex: Male

DRUGS (4)
  1. METOJECT [Suspect]
     Active Substance: METHOTREXATE SODIUM
     Indication: WALDENSTROM^S MACROGLOBULINAEMIA
     Route: 037
  2. IMBRUVICA [Suspect]
     Active Substance: IBRUTINIB
     Indication: WALDENSTROM^S MACROGLOBULINAEMIA
     Route: 048
  3. IMBRUVICA [Suspect]
     Active Substance: IBRUTINIB
     Indication: WALDENSTROM^S MACROGLOBULINAEMIA
     Route: 048
     Dates: start: 20150723, end: 201510
  4. DEPOCYTE [Suspect]
     Active Substance: CYTARABINE
     Indication: WALDENSTROM^S MACROGLOBULINAEMIA
     Route: 037

REACTIONS (1)
  - Cauda equina syndrome [Recovering/Resolving]

NARRATIVE: CASE EVENT DATE: 201508
